FAERS Safety Report 11509905 (Version 1)
Quarter: 2015Q3

REPORT INFORMATION
  Report Type: Spontaneous
  Country: US (occurrence: US)
  Receive Date: 20150915
  Receipt Date: 20150915
  Transmission Date: 20151125
  Serious: No
  Sender: FDA-Public Use
  Company Number: US-JNJFOC-20150805603

PATIENT
  Age: 32 Year
  Sex: Male
  Weight: 90.72 kg

DRUGS (4)
  1. ZYRTEC-D [Suspect]
     Active Substance: CETIRIZINE HYDROCHLORIDE\PSEUDOEPHEDRINE HYDROCHLORIDE
     Route: 048
  2. ZYRTEC-D [Suspect]
     Active Substance: CETIRIZINE HYDROCHLORIDE\PSEUDOEPHEDRINE HYDROCHLORIDE
     Indication: MULTIPLE ALLERGIES
     Dosage: FOR 3 DAYS
     Route: 048
     Dates: start: 20150727, end: 20150729
  3. ALKA SELTZER [Concomitant]
     Active Substance: ANHYDROUS CITRIC ACID\ASPIRIN\SODIUM BICARBONATE
     Indication: MULTIPLE ALLERGIES
     Route: 065
  4. CLARITIN [Concomitant]
     Active Substance: LORATADINE
     Indication: MULTIPLE ALLERGIES
     Route: 065

REACTIONS (4)
  - Poor quality sleep [Unknown]
  - Body temperature abnormal [Unknown]
  - Drug ineffective [Unknown]
  - Somnolence [Unknown]
